FAERS Safety Report 6774763-4 (Version None)
Quarter: 2010Q2

REPORT INFORMATION
  Report Type: 
  Country: None (occurrence: None)
  Receive Date: 20100616
  Receipt Date: 20100616
  Transmission Date: 20101027
  Serious: Yes (Other)
  Sender: FDA-Public Use
  Company Number: None

PATIENT
  Age: 43 Year
  Sex: Female
  Weight: 158.759 kg

DRUGS (1)
  1. LEVAQUIN [Suspect]
     Indication: BRONCHITIS
     Dosage: 500 MG ONCE DAILY PO
     Route: 048
     Dates: start: 20100516, end: 20100528

REACTIONS (7)
  - ASTHENIA [None]
  - BACK DISORDER [None]
  - BACK PAIN [None]
  - INFLAMMATION [None]
  - MUSCLE INJURY [None]
  - MUSCLE STRAIN [None]
  - TENDON PAIN [None]
